FAERS Safety Report 5740735-1 (Version None)
Quarter: 2008Q2

REPORT INFORMATION
  Report Type: 
  Country: None (occurrence: None)
  Receive Date: 20080515
  Receipt Date: 20080116
  Transmission Date: 20081010
  Serious: Yes (Life-Threatening)
  Sender: FDA-Public Use
  Company Number: WAES 0711USA02271

PATIENT
  Sex: Male
  Weight: 72.5755 kg

DRUGS (1)
  1. TAB ISENTRESS [Suspect]
     Indication: HIV INFECTION
     Dosage: 400 MG/BID/PO
     Route: 048
     Dates: start: 20071217

REACTIONS (1)
  - IMMUNE RECONSTITUTION SYNDROME [None]
